FAERS Safety Report 21782232 (Version 2)
Quarter: 2023Q1

REPORT INFORMATION
  Report Type: Report from Study
  Country: CN (occurrence: CN)
  Receive Date: 20221227
  Receipt Date: 20230213
  Transmission Date: 20230417
  Serious: Yes (Hospitalization)
  Sender: FDA-Public Use
  Company Number: CN-ASTELLAS-2022US045241

PATIENT
  Age: 74 Year
  Sex: Male
  Weight: 61 kg

DRUGS (5)
  1. ENZALUTAMIDE [Suspect]
     Active Substance: ENZALUTAMIDE
     Indication: Hormone-dependent prostate cancer
     Route: 048
     Dates: start: 20220428, end: 20221215
  2. ZOLEDRONIC ACID [Concomitant]
     Active Substance: ZOLEDRONIC ACID
     Indication: Product used for unknown indication
     Route: 042
     Dates: start: 20220330
  3. HYDROCHLOROTHIAZIDE\IRBESARTAN [Concomitant]
     Active Substance: HYDROCHLOROTHIAZIDE\IRBESARTAN
     Indication: Product used for unknown indication
     Route: 065
     Dates: start: 20220612
  4. GOSERELIN ACETATE [Concomitant]
     Active Substance: GOSERELIN ACETATE
     Indication: Product used for unknown indication
     Route: 058
     Dates: start: 20220624
  5. FERROUS SULFATE [Concomitant]
     Active Substance: FERROUS SULFATE
     Indication: Product used for unknown indication
     Dosage: 0.9 G, UNKNOWN FREQ.
     Route: 065
     Dates: start: 20220809

REACTIONS (2)
  - Cerebral infarction [Recovered/Resolved with Sequelae]
  - Coronary artery disease [Recovered/Resolved with Sequelae]

NARRATIVE: CASE EVENT DATE: 20221215
